FAERS Safety Report 7167987-8 (Version None)
Quarter: 2010Q4

REPORT INFORMATION
  Report Type: 
  Country: None (occurrence: None)
  Receive Date: 20101216
  Receipt Date: 20101206
  Transmission Date: 20110411
  Serious: No
  Sender: FDA-Public Use
  Company Number: US-PFIZER INC-2010165886

PATIENT

DRUGS (1)
  1. GEODON [Suspect]
     Dosage: UNK

REACTIONS (1)
  - DYSPNOEA [None]
